FAERS Safety Report 19758139 (Version 1)
Quarter: 2021Q3

REPORT INFORMATION
  Report Type: Spontaneous
  Country: IN (occurrence: IN)
  Receive Date: 20210828
  Receipt Date: 20210828
  Transmission Date: 20211014
  Serious: Yes (Hospitalization, Other)
  Sender: FDA-Public Use
  Company Number: IN-SETONPHARMA-2021SETLIT00013

PATIENT
  Age: 5 Year
  Sex: Female

DRUGS (9)
  1. PREDNISOLONE. [Suspect]
     Active Substance: PREDNISOLONE
     Route: 048
  2. METHYLPREDNISOLONE. [Interacting]
     Active Substance: METHYLPREDNISOLONE
     Indication: ADENOVIRUS INFECTION
     Dosage: FOR 2 DAY
     Route: 065
  3. METHYLPREDNISOLONE. [Interacting]
     Active Substance: METHYLPREDNISOLONE
     Route: 065
  4. METHOTREXATE. [Suspect]
     Active Substance: METHOTREXATE
     Indication: STILL^S DISEASE
     Route: 048
  5. CIDOFOVIR. [Interacting]
     Active Substance: CIDOFOVIR
     Indication: ADENOVIRUS INFECTION
     Route: 042
  6. PREDNISOLONE. [Suspect]
     Active Substance: PREDNISOLONE
     Indication: STILL^S DISEASE
     Route: 048
  7. LEFLUNOMIDE. [Suspect]
     Active Substance: LEFLUNOMIDE
     Indication: STILL^S DISEASE
     Route: 065
  8. TOCILIZUMAB. [Suspect]
     Active Substance: TOCILIZUMAB
     Indication: STILL^S DISEASE
     Route: 065
  9. CYCLOSPORINE. [Interacting]
     Active Substance: CYCLOSPORINE
     Indication: ADENOVIRUS INFECTION
     Dosage: 4 MG/KG/DAY
     Route: 048

REACTIONS (23)
  - Tachypnoea [Recovering/Resolving]
  - Hypophagia [Recovering/Resolving]
  - Arthritis [Recovering/Resolving]
  - Thrombocytopenia [Recovering/Resolving]
  - Pyrexia [Recovered/Resolved]
  - Vomiting [Recovering/Resolving]
  - Somnolence [Recovering/Resolving]
  - Dehydration [Recovering/Resolving]
  - Leukopenia [Recovering/Resolving]
  - Liver disorder [Recovering/Resolving]
  - Adenovirus infection [Recovering/Resolving]
  - Seizure [Recovering/Resolving]
  - Hypoglycaemia [Recovering/Resolving]
  - Rash maculo-papular [Recovering/Resolving]
  - Hepatosplenomegaly [Recovering/Resolving]
  - Encephalopathy [Recovering/Resolving]
  - Cytopenia [Recovering/Resolving]
  - Pneumonia [Recovering/Resolving]
  - Haemophagocytic lymphohistiocytosis [Recovering/Resolving]
  - Tachycardia [Recovering/Resolving]
  - Metabolic acidosis [Recovering/Resolving]
  - Irritability [Recovering/Resolving]
  - Pallor [Recovering/Resolving]
